FAERS Safety Report 6087481-5 (Version None)
Quarter: 2009Q1

REPORT INFORMATION
  Report Type: 
  Country: None (occurrence: None)
  Receive Date: 20090219
  Receipt Date: 20081111
  Transmission Date: 20090719
  Serious: Yes (Hospitalization, Other)
  Sender: FDA-Public Use
  Company Number: WAES 0811USA01637

PATIENT
  Age: 52 Year
  Sex: Male
  Weight: 107.0489 kg

DRUGS (4)
  1. JANUVIA [Suspect]
     Indication: TYPE 2 DIABETES MELLITUS
     Dosage: 100 MG/DAILY/PO
     Route: 048
     Dates: start: 20080926, end: 20081109
  2. DIOVAN HCT [Concomitant]
  3. PROTONIX [Concomitant]
  4. METFORMIN HCL [Concomitant]

REACTIONS (1)
  - STEVENS-JOHNSON SYNDROME [None]
